FAERS Safety Report 20618313 (Version 2)
Quarter: 2022Q1

REPORT INFORMATION
  Report Type: Spontaneous
  Country: CO (occurrence: CO)
  Receive Date: 20220321
  Receipt Date: 20220329
  Transmission Date: 20220424
  Serious: Yes (Other)
  Sender: FDA-Public Use
  Company Number: CO-BAYER-2022A040121

PATIENT
  Age: 16 Year
  Sex: Female

DRUGS (2)
  1. LAROTRECTINIB [Suspect]
     Active Substance: LAROTRECTINIB
     Indication: Dedifferentiated liposarcoma
     Dosage: UNK
     Dates: start: 20210204, end: 202109
  2. LAROTRECTINIB [Suspect]
     Active Substance: LAROTRECTINIB
     Indication: Soft tissue sarcoma

REACTIONS (3)
  - Leukaemia [None]
  - Pancytopenia [None]
  - Transaminases increased [None]
